FAERS Safety Report 7364287-8 (Version None)
Quarter: 2011Q1

REPORT INFORMATION
  Report Type: 
  Country: None (occurrence: None)
  Receive Date: 20110321
  Receipt Date: 20110311
  Transmission Date: 20110831
  Serious: Yes (Other)
  Sender: FDA-Public Use
  Company Number: B0702096A

PATIENT
  Sex: Female

DRUGS (6)
  1. BIOFERMIN R [Concomitant]
     Dosage: 3IUAX PER DAY
     Route: 048
     Dates: start: 20110218
  2. CALONAL [Concomitant]
     Route: 048
  3. CALONAL [Concomitant]
     Dosage: 800MG PER DAY
     Route: 048
     Dates: start: 20110215
  4. RELENZA [Suspect]
     Indication: INFLUENZA
     Dosage: 20MG PER DAY
     Route: 055
     Dates: start: 20110218, end: 20110221
  5. MEIACT [Concomitant]
     Dosage: 300MG PER DAY
     Route: 048
     Dates: start: 20110215
  6. TRANEXAMIC ACID [Concomitant]
     Dosage: 3IUAX PER DAY
     Route: 065
     Dates: start: 20110218

REACTIONS (2)
  - METRORRHAGIA [None]
  - HEADACHE [None]
